FAERS Safety Report 5761024-5 (Version None)
Quarter: 2008Q2

REPORT INFORMATION
  Report Type: 
  Country: None (occurrence: None)
  Receive Date: 20080606
  Receipt Date: 20080528
  Transmission Date: 20081010
  Serious: Yes (Hospitalization)
  Sender: FDA-Public Use
  Company Number: FR-AVENTIS-200811989FR

PATIENT
  Age: 1 Day
  Sex: Male
  Weight: 1.23 kg

DRUGS (7)
  1. KETOPROFEN [Suspect]
     Route: 064
     Dates: start: 20030801, end: 20030801
  2. FLAGYL [Suspect]
     Dates: start: 20040101, end: 20040101
  3. MIFEGYNE [Suspect]
     Route: 064
     Dates: start: 20030801, end: 20030801
  4. CYTOTEC [Suspect]
     Route: 048
     Dates: start: 20030801, end: 20030801
  5. LOXEN [Suspect]
     Route: 048
     Dates: start: 20030801, end: 20040101
  6. CELESTENE                          /00008501/ [Suspect]
     Dates: start: 20031201, end: 20040101
  7. CLAMOXYL                           /00249601/ [Suspect]
     Dates: start: 20031201

REACTIONS (3)
  - CEREBRAL HAEMORRHAGE [None]
  - NECROTISING ENTEROCOLITIS NEONATAL [None]
  - NEONATAL RESPIRATORY DISTRESS SYNDROME [None]
